FAERS Safety Report 17046017 (Version 2)
Quarter: 2024Q1

REPORT INFORMATION
  Report Type: Other
  Country: GB (occurrence: None)
  Receive Date: 20191119
  Receipt Date: 20240115
  Transmission Date: 20240410
  Serious: No
  Sender: FDA-Public Use
  Company Number: GB-ROCHE-2318898

PATIENT
  Age: 43 Year
  Sex: Female

DRUGS (2)
  1. OCREVUS [Suspect]
     Active Substance: OCRELIZUMAB
     Indication: Relapsing-remitting multiple sclerosis
     Dosage: 1ST DOSE, THEN 600 MG ONCE IN 6 MONTHS
     Route: 041
  2. OCREVUS [Suspect]
     Active Substance: OCRELIZUMAB
     Indication: Primary progressive multiple sclerosis

REACTIONS (7)
  - Rhinorrhoea [Unknown]
  - Paraesthesia [Unknown]
  - Throat irritation [Unknown]
  - Erythema [Unknown]
  - Tachycardia [Unknown]
  - Oral herpes [Recovering/Resolving]
  - Pneumonia [Recovered/Resolved]

NARRATIVE: CASE EVENT DATE: 20191028
